FAERS Safety Report 5662576-6 (Version None)
Quarter: 2008Q1

REPORT INFORMATION
  Report Type: 
  Country: None (occurrence: None)
  Receive Date: 20080310
  Receipt Date: 20080310
  Transmission Date: 20080703
  Serious: Yes (Life-Threatening)
  Sender: FDA-Public Use
  Company Number: None

PATIENT
  Age: 47 Year
  Sex: Female
  Weight: 55.3388 kg

DRUGS (2)
  1. ULTRAM [Suspect]
     Indication: FATIGUE
     Dosage: 50MG 1 OR 2 X PER DAY PO
     Route: 048
  2. ULTRAM [Suspect]
     Indication: MYALGIA
     Dosage: 50MG 1 OR 2 X PER DAY PO
     Route: 048

REACTIONS (9)
  - AGITATION [None]
  - ANGER [None]
  - ASTHENIA [None]
  - CONFUSIONAL STATE [None]
  - DISTURBANCE IN ATTENTION [None]
  - DYSPHAGIA [None]
  - GAIT DISTURBANCE [None]
  - MIDDLE INSOMNIA [None]
  - WITHDRAWAL SYNDROME [None]
